FAERS Safety Report 6407979-7 (Version None)
Quarter: 2009Q4

REPORT INFORMATION
  Report Type: 
  Country: None (occurrence: None)
  Receive Date: 20091020
  Receipt Date: 20091014
  Transmission Date: 20100525
  Serious: Yes (Other)
  Sender: FDA-Public Use
  Company Number: US-JNJCH-2009027335

PATIENT
  Sex: Female

DRUGS (2)
  1. SUDAFED PE SEVERE COLD CAPLET [Suspect]
     Indication: NASOPHARYNGITIS
     Dosage: TEXT:2 CAPLETS TWICE DAILY
     Route: 048
     Dates: start: 20091013, end: 20091014
  2. CARBATROL [Concomitant]
     Indication: EPILEPSY
     Dosage: TEXT:UNSPECIFIED
     Route: 065

REACTIONS (4)
  - BALANCE DISORDER [None]
  - DIZZINESS [None]
  - DRY MOUTH [None]
  - TONGUE DISORDER [None]
